FAERS Safety Report 10182745 (Version 1)
Quarter: 2014Q2

REPORT INFORMATION
  Report Type: Spontaneous
  Country: TR (occurrence: None)
  Receive Date: 20140516
  Receipt Date: 20140516
  Transmission Date: 20141212
  Serious: Yes (Other)
  Sender: FDA-Public Use
  Company Number: 2014AP002925

PATIENT
  Age: 57 Year
  Sex: Female

DRUGS (5)
  1. OLANZAPINE [Suspect]
     Indication: SCHIZOPHRENIA
     Dosage: DURATION 1095 DAYS, 30 MG, QD, UNKNOWN
  2. QUETIAPINE [Suspect]
     Indication: SCHIZOPHRENIA
     Dosage: DURATION 1095 DAYS, 800 MG, QD, UNKNOWN
  3. RISPERIDONE [Suspect]
     Indication: SCHIZOPHRENIA
     Dosage: 6 MG, QD, UNKNOWN
  4. HALOPERIDOL (HALOPERIDOL) (HALOPERIDOL) [Suspect]
     Indication: SCHIZOPHRENIA
     Dosage: 20 MG, QD, UNKNOWN
  5. CHLORPROMAZINE (CHLORPROMAZINE) [Suspect]
     Indication: SCHIZOPHRENIA
     Dosage: 300 MG, QD, UNKNOWN?

REACTIONS (2)
  - Neutropenia [None]
  - Leukopenia [None]
